FAERS Safety Report 15860303 (Version 1)
Quarter: 2019Q1

REPORT INFORMATION
  Report Type: Spontaneous
  Country: US (occurrence: US)
  Receive Date: 20190123
  Receipt Date: 20190123
  Transmission Date: 20190417
  Serious: No
  Sender: FDA-Public Use
  Company Number: US-PFIZER INC-2016447222

PATIENT
  Age: 55 Year
  Sex: Male

DRUGS (1)
  1. RELPAX [Suspect]
     Active Substance: ELETRIPTAN HYDROBROMIDE
     Indication: MIGRAINE
     Dosage: 1 DF, AS NEEDED, REPEAT ACHE 2 HOURS IF NEEDED

REACTIONS (2)
  - Weight decreased [Unknown]
  - Exostosis [Unknown]
